FAERS Safety Report 6382403-1 (Version None)
Quarter: 2009Q3

REPORT INFORMATION
  Report Type: 
  Country: None (occurrence: None)
  Receive Date: 20090928
  Receipt Date: 20090928
  Transmission Date: 20100115
  Serious: Yes (Other)
  Sender: FDA-Public Use
  Company Number: None

PATIENT
  Sex: Female

DRUGS (1)
  1. ULORIC [Suspect]
     Indication: CALCULUS URINARY
     Dosage: 40MG QD PO
     Route: 048
     Dates: start: 20090826, end: 20090916

REACTIONS (4)
  - CORNEAL DEPOSITS [None]
  - CORNEAL DISORDER [None]
  - EYE PAIN [None]
  - VISUAL ACUITY REDUCED [None]
